FAERS Safety Report 7826691-0 (Version None)
Quarter: 2011Q4

REPORT INFORMATION
  Report Type: 
  Country: None (occurrence: None)
  Receive Date: 20111020
  Receipt Date: 20111006
  Transmission Date: 20120403
  Serious: Yes (Hospitalization)
  Sender: FDA-Public Use
  Company Number: US-BAYER-2010-006444

PATIENT
  Age: 32 Year
  Sex: Female

DRUGS (8)
  1. NAPROXEN [Concomitant]
     Indication: MIGRAINE
     Dosage: 500 MG, UNK
     Route: 048
  2. ORTHO MICRONOR-28 [Concomitant]
     Dosage: UNK
     Dates: start: 20090301
  3. FLINTSTONES [Concomitant]
     Dosage: UNK UNK, QD
  4. INDERAL LA [Concomitant]
  5. IMITREX [Concomitant]
     Indication: MIGRAINE
     Dosage: 50 MG, UNK
     Route: 048
  6. YAZ [Suspect]
     Dosage: UNK
     Dates: start: 20080701, end: 20090101
  7. IBUPROFEN [Concomitant]
     Dosage: UNK UNK, PRN
  8. BEE POLLEN [Concomitant]
     Dosage: 1 U, QD

REACTIONS (7)
  - PAIN [None]
  - PULMONARY EMBOLISM [None]
  - DYSPNOEA [None]
  - INJURY [None]
  - CARDIAC DISORDER [None]
  - ANXIETY [None]
  - PULMONARY THROMBOSIS [None]
